FAERS Safety Report 17162858 (Version 1)
Quarter: 2019Q4

REPORT INFORMATION
  Report Type: Spontaneous
  Country: US (occurrence: US)
  Receive Date: 20191216
  Receipt Date: 20191216
  Transmission Date: 20200122
  Serious: Yes (Hospitalization)
  Sender: FDA-Public Use
  Company Number: None

PATIENT
  Age: 66 Year
  Sex: Female

DRUGS (5)
  1. CHLORTHALID [Concomitant]
     Active Substance: CHLORTHALIDONE
  2. HUMIRA [Suspect]
     Active Substance: ADALIMUMAB
     Indication: CROHN^S DISEASE
     Dosage: ?          OTHER FREQUENCY:Q2WKS;?
     Route: 058
     Dates: start: 20180104
  3. VALSARTAN. [Concomitant]
     Active Substance: VALSARTAN
  4. TRIAMCINOLON [Concomitant]
  5. BASAGLAR [Concomitant]
     Active Substance: INSULIN GLARGINE

REACTIONS (4)
  - Sciatic nerve injury [None]
  - Dehydration [None]
  - Peripheral swelling [None]
  - Cardiac failure congestive [None]

NARRATIVE: CASE EVENT DATE: 20191111
